FAERS Safety Report 20351622 (Version 2)
Quarter: 2022Q1

REPORT INFORMATION
  Report Type: Spontaneous
  Country: IL (occurrence: IL)
  Receive Date: 20220119
  Receipt Date: 20220302
  Transmission Date: 20220423
  Serious: No
  Sender: FDA-Public Use
  Company Number: IL-TEVAIL-2022-IL-2000381

PATIENT
  Age: 61 Year
  Sex: Male

DRUGS (1)
  1. ALFUZOSIN [Suspect]
     Active Substance: ALFUZOSIN
     Indication: Urine output decreased
     Route: 048

REACTIONS (3)
  - Oropharyngeal discomfort [Unknown]
  - Product use complaint [Unknown]
  - Feeling abnormal [Unknown]
